FAERS Safety Report 6350831-6 (Version None)
Quarter: 2009Q3

REPORT INFORMATION
  Report Type: 
  Country: None (occurrence: None)
  Receive Date: 20090912
  Receipt Date: 20090622
  Transmission Date: 20100115
  Serious: No
  Sender: FDA-Public Use
  Company Number: US-ABBOTT-07P-163-0367190-00

PATIENT
  Sex: Female
  Weight: 61.29 kg

DRUGS (5)
  1. HUMIRA [Suspect]
     Indication: RHEUMATOID ARTHRITIS
     Route: 058
     Dates: start: 20060801
  2. HUMIRA [Suspect]
     Route: 058
     Dates: start: 20050101, end: 20060801
  3. ATORVASTATIN CALCIUM [Suspect]
     Indication: BLOOD CHOLESTEROL INCREASED
     Route: 048
     Dates: start: 20070412, end: 20070419
  4. DYAZIDE [Concomitant]
     Indication: HYPERTENSION
  5. RAMIPRIL [Concomitant]
     Indication: HYPERTENSION
     Route: 048
     Dates: start: 20070412

REACTIONS (3)
  - ARTHRALGIA [None]
  - INCORRECT DOSE ADMINISTERED [None]
  - MYALGIA [None]
